FAERS Safety Report 14237744 (Version 2)
Quarter: 2018Q1

REPORT INFORMATION
  Report Type: Report from Study
  Country: US (occurrence: US)
  Receive Date: 20171129
  Receipt Date: 20180123
  Transmission Date: 20180508
  Serious: Yes (Other)
  Sender: FDA-Public Use
  Company Number: PHEH2017US038455

PATIENT
  Age: 47 Year

DRUGS (1)
  1. GILENYA [Suspect]
     Active Substance: FINGOLIMOD HYDROCHLORIDE
     Indication: RELAPSING-REMITTING MULTIPLE SCLEROSIS
     Dosage: 0.5 MG, QD
     Route: 048
     Dates: start: 20170911

REACTIONS (7)
  - Haemorrhage urinary tract [Unknown]
  - Skin depigmentation [Unknown]
  - Urinary tract infection [Unknown]
  - Pain [Unknown]
  - Hypoaesthesia [Unknown]
  - Dysuria [Unknown]
  - Migraine [Unknown]

NARRATIVE: CASE EVENT DATE: 20180108
